FAERS Safety Report 18981881 (Version 2)
Quarter: 2021Q2

REPORT INFORMATION
  Report Type: Report from Study
  Country: CA (occurrence: CA)
  Receive Date: 20210308
  Receipt Date: 20210503
  Transmission Date: 20210717
  Serious: Yes (Other)
  Sender: FDA-Public Use
  Company Number: CA-JNJFOC-20210303191

PATIENT
  Age: 60 Year
  Sex: Female
  Weight: 65.8 kg

DRUGS (1)
  1. STELARA [Suspect]
     Active Substance: USTEKINUMAB
     Indication: CROHN^S DISEASE
     Route: 058

REACTIONS (6)
  - Dysphagia [Recovering/Resolving]
  - Swollen tongue [Recovering/Resolving]
  - Nausea [Recovering/Resolving]
  - Injection related reaction [Recovering/Resolving]
  - Dry mouth [Recovering/Resolving]
  - Paraesthesia oral [Recovering/Resolving]

NARRATIVE: CASE EVENT DATE: 20210301
